FAERS Safety Report 25741242 (Version 1)
Quarter: 2025Q3

REPORT INFORMATION
  Report Type: Spontaneous
  Country: BR (occurrence: BR)
  Receive Date: 20250829
  Receipt Date: 20250829
  Transmission Date: 20251021
  Serious: Yes (Other)
  Sender: NOVO NORDISK
  Company Number: BR-NOVOPROD-1505980

PATIENT
  Age: 51 Year
  Sex: Female
  Weight: 68 kg

DRUGS (1)
  1. RYBELSUS [Suspect]
     Active Substance: SEMAGLUTIDE
     Indication: Product used for unknown indication

REACTIONS (5)
  - Partial seizures [Recovered/Resolved]
  - Oesophageal spasm [Unknown]
  - Syncope [Unknown]
  - Presyncope [Unknown]
  - Bradycardia [Unknown]

NARRATIVE: CASE EVENT DATE: 20250201
